FAERS Safety Report 7661836 (Version 13)
Quarter: 2012Q4

REPORT INFORMATION
  Report Type: 
  Country: CA (occurrence: CA)
  Receive Date: 20101109
  Receipt Date: 20121114
  Transmission Date: 20130627
  Serious: Yes (Hospitalization, Other)
  Sender: FDA-Public Use
  Company Number: PHHY2009CA42878

PATIENT
  Sex: Female

DRUGS (5)
  1. SANDOSTATIN LAR [Suspect]
     Indication: NEUROENDOCRINE TUMOUR
     Dosage: 60 mg, QW3
     Route: 030
     Dates: start: 20070723
  2. SANDOSTATIN LAR [Suspect]
     Dosage: 50 mg every 4 weeks
     Route: 030
  3. SANDOSTATIN LAR [Suspect]
     Dosage: 50 mg, TIW
     Route: 030
  4. SANDOSTATIN LAR [Suspect]
     Dosage: 60 mg, every 2 weeks
     Route: 030
  5. AFINITOR [Suspect]
     Indication: NEUROENDOCRINE TUMOUR
     Dosage: 10 mg, QD
     Route: 048
     Dates: start: 20110312, end: 20110319

REACTIONS (16)
  - Bile duct stone [Unknown]
  - Cholangitis [Unknown]
  - Asthenia [Unknown]
  - Diarrhoea [Recovered/Resolved]
  - Stress [Unknown]
  - Pallor [Unknown]
  - Malaise [Unknown]
  - Fatigue [Unknown]
  - Vomiting [Recovered/Resolved]
  - Constipation [Unknown]
  - Abdominal pain [Recovered/Resolved]
  - Nausea [Unknown]
  - Decreased appetite [Unknown]
  - Rash [Not Recovered/Not Resolved]
  - Retching [Unknown]
  - Weight decreased [Unknown]
